FAERS Safety Report 19296103 (Version 1)
Quarter: 2021Q2

REPORT INFORMATION
  Report Type: Spontaneous
  Country: FR (occurrence: FR)
  Receive Date: 20210524
  Receipt Date: 20210524
  Transmission Date: 20210717
  Serious: Yes (Hospitalization)
  Sender: FDA-Public Use
  Company Number: FR-SUN PHARMACEUTICAL INDUSTRIES LTD-2021RR-297558

PATIENT
  Age: 62 Year
  Sex: Male

DRUGS (5)
  1. AXEPIM [Suspect]
     Active Substance: CEFEPIME HYDROCHLORIDE
     Indication: INFECTION
     Dosage: 6 GRAM, UNK
     Route: 042
     Dates: start: 20210308, end: 20210315
  2. MORPHINE [Suspect]
     Active Substance: MORPHINE
     Indication: PAIN
     Dosage: 20 MILLIGRAM, UNK
     Route: 042
     Dates: start: 20210309
  3. ATORVASTATIN [Suspect]
     Active Substance: ATORVASTATIN
     Indication: PROPHYLAXIS
     Dosage: 80 MILLIGRAM, UNK
     Route: 048
     Dates: start: 2017
  4. LASILIX [Suspect]
     Active Substance: FUROSEMIDE
     Indication: VARICES OESOPHAGEAL
     Dosage: 80 MILLIGRAM, UNK
     Route: 042
     Dates: start: 20210312, end: 20210315
  5. FLAGYL [Suspect]
     Active Substance: METRONIDAZOLE\METRONIDAZOLE HYDROCHLORIDE
     Indication: INFECTION
     Dosage: 1500 MILLIGRAM, UNK
     Route: 041
     Dates: start: 20210308, end: 20210315

REACTIONS (2)
  - Cholestasis [Not Recovered/Not Resolved]
  - Myositis [Not Recovered/Not Resolved]

NARRATIVE: CASE EVENT DATE: 202103
